FAERS Safety Report 19210792 (Version 5)
Quarter: 2021Q3

REPORT INFORMATION
  Report Type: Spontaneous
  Country: GB (occurrence: GB)
  Receive Date: 20210504
  Receipt Date: 20210730
  Transmission Date: 20211014
  Serious: Yes (Other)
  Sender: FDA-Public Use
  Company Number: GB-SA-2021SA140165

PATIENT
  Age: 53 Year
  Sex: Female

DRUGS (15)
  1. DOCETAXEL. [Suspect]
     Active Substance: DOCETAXEL
     Dosage: 90 MG, Q3W
     Route: 042
     Dates: start: 20160203, end: 20210316
  2. PERTUZUMAB. [Suspect]
     Active Substance: PERTUZUMAB
     Indication: PRODUCT USED FOR UNKNOWN INDICATION
     Dosage: 840 MG, Q3W (LOADING DOSE, 1 CYCLE PER REGIMEN)
     Route: 042
     Dates: start: 20151203, end: 20151203
  3. TRASTUZUMAB. [Suspect]
     Active Substance: TRASTUZUMAB
     Indication: BREAST CANCER
     Dosage: 1071 MG, QD (LOADING DOSE 1 CYCLE PER REGIMEN)
     Route: 041
     Dates: start: 20151203, end: 20151203
  4. DOCETAXEL. [Suspect]
     Active Substance: DOCETAXEL
     Dosage: UNK (1 CYCLE PER REGIMEN)
  5. PERTUZUMAB. [Suspect]
     Active Substance: PERTUZUMAB
     Dosage: 420 MG, Q3W (MAINTAINENCE DOSE)
     Route: 042
     Dates: start: 20151223, end: 20160720
  6. DENOSUMAB [Suspect]
     Active Substance: DENOSUMAB
     Indication: METASTASES TO BONE
     Dosage: UNK
     Route: 065
  7. TRASTUZUMAB EMTANSINE [Suspect]
     Active Substance: ADO-TRASTUZUMAB EMTANSINE
     Indication: BREAST CANCER
     Dosage: UNK (STRENGTH: 230 UNITED NOT REPORTED)
  8. DOCETAXEL. [Suspect]
     Active Substance: DOCETAXEL
     Indication: BREAST CANCER
     Dosage: 150 MG, 1X (1 CYCLE PER REGIMEN)
     Route: 042
     Dates: start: 20151204, end: 20151204
  9. DOCETAXEL. [Suspect]
     Active Substance: DOCETAXEL
     Indication: BREAST CANCER
     Dosage: 120 MG, Q3W (5 CYCLES PER REGIMEN)
     Route: 042
     Dates: start: 20151223, end: 20160113
  10. DENOSUMAB [Suspect]
     Active Substance: DENOSUMAB
     Indication: BREAST CANCER
     Dosage: 120 MG, Q3W
     Route: 058
     Dates: start: 20151203
  11. TRASTUZUMAB EMTANSINE [Suspect]
     Active Substance: ADO-TRASTUZUMAB EMTANSINE
     Indication: BREAST CANCER
     Dosage: 450 MG, Q3W
     Route: 042
     Dates: start: 20160817, end: 20161109
  12. DOCETAXEL. [Suspect]
     Active Substance: DOCETAXEL
     Dosage: 90 MG, Q3W
     Route: 042
     Dates: start: 20161203, end: 20210316
  13. TRASTUZUMAB. [Suspect]
     Active Substance: TRASTUZUMAB
     Dosage: 819 MG, Q3W (MAINTENANCE DOSE)
     Route: 042
     Dates: start: 20151223, end: 20160113
  14. TRASTUZUMAB. [Suspect]
     Active Substance: TRASTUZUMAB
     Dosage: 735 MG, Q3W (MAINTENANCE DOSE)
     Route: 042
     Dates: start: 20160203, end: 20160720
  15. LOPERAMIDE [Concomitant]
     Active Substance: LOPERAMIDE
     Dosage: 2 MG
     Route: 048
     Dates: end: 20160318

REACTIONS (16)
  - Onychomycosis [Unknown]
  - Fatigue [Not Recovered/Not Resolved]
  - Depressed mood [Recovered/Resolved]
  - Diabetes mellitus [Not Recovered/Not Resolved]
  - Migraine [Recovered/Resolved]
  - Diarrhoea [Recovered/Resolved]
  - Spinal pain [Recovered/Resolved]
  - Vomiting [Recovered/Resolved]
  - Nail discolouration [Unknown]
  - Cough [Not Recovered/Not Resolved]
  - Vomiting [Recovered/Resolved]
  - Diarrhoea [Recovered/Resolved]
  - Fatigue [Recovering/Resolving]
  - Decreased appetite [Unknown]
  - Dyspnoea [Unknown]
  - Blood cholesterol increased [Unknown]

NARRATIVE: CASE EVENT DATE: 20151203
